FAERS Safety Report 7751388-5 (Version None)
Quarter: 2011Q3

REPORT INFORMATION
  Report Type: 
  Country: None (occurrence: None)
  Receive Date: 20110914
  Receipt Date: 20110901
  Transmission Date: 20111222
  Serious: Yes (Hospitalization, Disabling)
  Sender: FDA-Public Use
  Company Number: US-BAYER-2011-082478

PATIENT
  Sex: Male

DRUGS (2)
  1. CIPROFLOXACIN [Suspect]
     Indication: COUGH
     Dosage: UNK
     Dates: start: 20100509, end: 20100516
  2. CIPROFLOXACIN [Suspect]
     Indication: KNEE OPERATION
     Dosage: UNK
     Dates: start: 20100524, end: 20100530

REACTIONS (11)
  - EMOTIONAL DISTRESS [None]
  - TENDON INJURY [None]
  - DYSPNOEA [None]
  - ANXIETY [None]
  - LIMB INJURY [None]
  - MYALGIA [None]
  - MYOSITIS [None]
  - PAIN [None]
  - JOINT INJURY [None]
  - ARTHRALGIA [None]
  - MUSCULAR WEAKNESS [None]
